FAERS Safety Report 6769742-7 (Version None)
Quarter: 2010Q2

REPORT INFORMATION
  Report Type: 
  Country: None (occurrence: None)
  Receive Date: 20100615
  Receipt Date: 20100607
  Transmission Date: 20101027
  Serious: Yes (Hospitalization, Other)
  Sender: FDA-Public Use
  Company Number: BE-ROCHE-708411

PATIENT
  Age: 72 Year
  Sex: Male

DRUGS (2)
  1. AVASTIN [Suspect]
     Dosage: STOP DATE GIVEN AS 2010.
     Route: 042
     Dates: start: 20100101
  2. FOLFIRI REGIMEN [Concomitant]
     Dosage: DRUG REPORTED AS FOLFIRI CHEMOTHERAPY.

REACTIONS (2)
  - GASTROINTESTINAL PERFORATION [None]
  - RECTAL ULCER [None]
